FAERS Safety Report 9850313 (Version 1)
Quarter: 2014Q1

REPORT INFORMATION
  Report Type: Spontaneous
  Country: DE (occurrence: DE)
  Receive Date: 20140128
  Receipt Date: 20140128
  Transmission Date: 20141002
  Serious: Yes (Hospitalization)
  Sender: FDA-Public Use
  Company Number: DE-GLAXOSMITHKLINE-D0081963A

PATIENT
  Age: 77 Year
  Sex: Male

DRUGS (9)
  1. INFLUSPLIT SSW 2013/2014 [Suspect]
     Indication: PROPHYLAXIS
     Route: 065
     Dates: start: 20131104, end: 20131104
  2. REQUIP-MODUTAB [Suspect]
     Indication: PARKINSON^S DISEASE
     Dosage: 8MG IN THE MORNING
     Route: 048
     Dates: end: 201311
  3. MADOPAR [Concomitant]
     Route: 048
  4. STALEVO [Concomitant]
     Dosage: 425MG PER DAY
     Route: 048
  5. SEROQUEL [Concomitant]
     Dosage: 50MG PER DAY
     Route: 048
  6. ASS [Concomitant]
     Dosage: 100MG PER DAY
     Route: 048
  7. BELOC-ZOK MITE [Concomitant]
     Route: 065
  8. BENALAPRIL [Concomitant]
     Dosage: 5MG TWICE PER DAY
     Route: 065
  9. SIMVASTATIN [Concomitant]
     Dosage: 20MG PER DAY
     Route: 048

REACTIONS (24)
  - Pyrexia [Recovered/Resolved]
  - Vomiting [Recovered/Resolved]
  - Disturbance in attention [Recovering/Resolving]
  - Parkinson^s disease [Unknown]
  - Hallucination, visual [Recovering/Resolving]
  - General physical health deterioration [Recovering/Resolving]
  - Dysphagia [Unknown]
  - Mobility decreased [Unknown]
  - Camptocormia [Unknown]
  - Musculoskeletal stiffness [Recovering/Resolving]
  - Disorientation [Recovering/Resolving]
  - Communication disorder [Recovering/Resolving]
  - Apathy [Recovering/Resolving]
  - Akinesia [Recovering/Resolving]
  - Bradykinesia [Not Recovered/Not Resolved]
  - Bradyphrenia [Not Recovered/Not Resolved]
  - Resting tremor [Unknown]
  - Chills [Recovering/Resolving]
  - Masked facies [Recovering/Resolving]
  - Salivary hypersecretion [Unknown]
  - Incoherent [Recovering/Resolving]
  - Derealisation [Unknown]
  - Gait disturbance [Unknown]
  - Balance disorder [Unknown]
